FAERS Safety Report 4571187-5 (Version None)
Quarter: 2005Q1

REPORT INFORMATION
  Report Type: 
  Country: None (occurrence: None)
  Receive Date: 20050202
  Receipt Date: 20050120
  Transmission Date: 20050727
  Serious: Yes (Other)
  Sender: FDA-Public Use
  Company Number: 2005017976

PATIENT
  Age: 23 Year
  Sex: Female
  Weight: 50 kg

DRUGS (3)
  1. FLUCONAZOLE [Suspect]
     Indication: CANDIDIASIS
  2. CIPROFLOXACIN [Concomitant]
  3. DOXYCYCLINE [Concomitant]

REACTIONS (2)
  - ABORTION SPONTANEOUS [None]
  - DRUG EXPOSURE DURING PREGNANCY [None]
